FAERS Safety Report 19896231 (Version 1)
Quarter: 2021Q3

REPORT INFORMATION
  Report Type: Spontaneous
  Country: CA (occurrence: CA)
  Receive Date: 20210929
  Receipt Date: 20210929
  Transmission Date: 20211014
  Serious: Yes (Hospitalization)
  Sender: FDA-Public Use
  Company Number: CA-ROCHE-2918519

PATIENT
  Age: 25 Year
  Sex: Female

DRUGS (10)
  1. COBAMAMIDE [Suspect]
     Active Substance: COBAMAMIDE
     Indication: VITAMIN B12 DEFICIENCY
     Route: 065
  2. ECULIZUMAB [Concomitant]
     Active Substance: ECULIZUMAB
     Indication: PROPHYLAXIS
  3. IMMUNOGLOBULINS [IMMUNOGLOBULINS NOS] [Suspect]
     Active Substance: IMMUNE GLOBULIN NOS
     Indication: PROPHYLAXIS
     Route: 042
  4. METHYLPREDNISOLONE. [Suspect]
     Active Substance: METHYLPREDNISOLONE
     Indication: PROPHYLAXIS
     Route: 042
  5. ARANESP [Suspect]
     Active Substance: DARBEPOETIN ALFA
     Indication: ANAEMIA
     Route: 065
  6. RITUXIMAB. [Suspect]
     Active Substance: RITUXIMAB
     Indication: PROPHYLAXIS
     Route: 042
  7. EPOETIN ALFA [Suspect]
     Active Substance: ERYTHROPOIETIN
     Indication: ANAEMIA
     Route: 065
  8. ERYTHROPOIETIN [Suspect]
     Active Substance: ERYTHROPOIETIN
     Indication: ANAEMIA
     Route: 065
  9. HYDROXYUREA. [Suspect]
     Active Substance: HYDROXYUREA
     Indication: SICKLE CELL DISEASE
     Route: 065
  10. IRON [Suspect]
     Active Substance: IRON
     Indication: ANAEMIA
     Route: 065

REACTIONS (8)
  - Premature delivery [Unknown]
  - Platelet count decreased [Recovered/Resolved]
  - Uterine atony [Recovered/Resolved]
  - Thrombocytopenia [Recovered/Resolved]
  - Off label use [Unknown]
  - Acute chest syndrome [Recovered/Resolved]
  - Anaemia [Recovered/Resolved]
  - Maternal exposure during pregnancy [Unknown]
